FAERS Safety Report 4695858-5 (Version None)
Quarter: 2005Q2

REPORT INFORMATION
  Report Type: 
  Country: None (occurrence: None)
  Receive Date: 20050621
  Receipt Date: 20050609
  Transmission Date: 20051028
  Serious: Yes (Hospitalization)
  Sender: FDA-Public Use
  Company Number: FR-SANOFI-SYNTHELABO-F01200500985

PATIENT
  Sex: Male
  Weight: 57 kg

DRUGS (17)
  1. OXALIPLATIN [Suspect]
     Indication: OESOPHAGEAL CARCINOMA
     Route: 042
  2. FLUOROURACIL [Suspect]
     Route: 042
  3. LEUCOVORIN [Suspect]
     Route: 042
  4. RADIOTHERAPY [Concomitant]
     Indication: OESOPHAGEAL CARCINOMA
     Dosage: TOTAL DOSE OF FRACTION ADMINISTERED BEFORE SAE: 36 GY
     Route: 050
     Dates: start: 20050527, end: 20050527
  5. DIANTALVIC [Concomitant]
     Indication: PAIN
     Dosage: 600 MG
     Route: 048
     Dates: start: 20050504, end: 20050501
  6. IMOVANE [Concomitant]
     Indication: ANXIETY
     Dosage: 7.5 MG
     Route: 048
     Dates: start: 20050502
  7. LEXOMIL [Concomitant]
     Indication: ANXIETY
     Dosage: 1 UNIT
     Route: 048
     Dates: start: 20050401
  8. STILNOX [Concomitant]
     Indication: ANXIETY
     Dosage: 1 UNIT
     Route: 048
     Dates: start: 20050401, end: 20050516
  9. EFFERALGAN CODEINE [Concomitant]
     Indication: PAIN
     Dosage: UNK
     Route: 048
     Dates: start: 20050401, end: 20050503
  10. OMEPRAZOLE [Concomitant]
     Indication: OESOPHAGITIS
     Dosage: 40 MG
     Route: 048
     Dates: start: 20050516
  11. XYLOCAINE VISCOUS [Concomitant]
     Indication: DYSPHAGIA
     Dosage: UNK
     Route: 048
     Dates: start: 20050516
  12. HYDROCORTISONE [Concomitant]
     Indication: EXTRAVASATION
     Dosage: 100 MG
     Route: 042
     Dates: start: 20050516, end: 20050516
  13. DAFALGAN [Concomitant]
     Indication: EXTRAVASATION
     Dosage: 1000 MG
     Route: 048
     Dates: start: 20050516, end: 20050516
  14. FLAMAZINE [Concomitant]
     Indication: EXTRAVASATION
     Dosage: UNK
     Route: 003
     Dates: start: 20050516, end: 20050518
  15. SOLUPRED [Concomitant]
     Indication: OESOPHAGITIS
     Dosage: 40 MG
     Route: 048
     Dates: start: 20050519, end: 20050525
  16. BICARBONATE [Concomitant]
     Indication: MUCOSAL INFLAMMATION
     Dosage: ML
     Route: 048
     Dates: start: 20050519
  17. ELUDRIL [Concomitant]
     Indication: MUCOSAL INFLAMMATION
     Dosage: ML
     Route: 048
     Dates: start: 20050519

REACTIONS (1)
  - DYSPHAGIA [None]
